FAERS Safety Report 9164932 (Version 1)
Quarter: 2013Q1

REPORT INFORMATION
  Report Type: Spontaneous
  Country: US (occurrence: None)
  Receive Date: 20130226
  Receipt Date: 20130226
  Transmission Date: 20140127
  Serious: Yes (Hospitalization, Other)
  Sender: FDA-Public Use
  Company Number: 2013P1002442

PATIENT
  Sex: Female

DRUGS (1)
  1. INFUMORPH [Suspect]
     Indication: CANCER PAIN
     Dates: start: 20130114, end: 20130131

REACTIONS (1)
  - Medical device pain [None]
